FAERS Safety Report 18254338 (Version 3)
Quarter: 2020Q4

REPORT INFORMATION
  Report Type: Spontaneous
  Country: JP (occurrence: JP)
  Receive Date: 20200910
  Receipt Date: 20201112
  Transmission Date: 20210113
  Serious: Yes (Death, Other)
  Sender: FDA-Public Use
  Company Number: JP-ASTRAZENECA-2020SF14145

PATIENT
  Age: 50 Year
  Sex: Female

DRUGS (11)
  1. FASLODEX [Suspect]
     Active Substance: FULVESTRANT
     Indication: BREAST CANCER FEMALE
     Dosage: 250.0MG UNKNOWN
     Route: 030
  2. NOLVADEX [Suspect]
     Active Substance: TAMOXIFEN CITRATE
     Indication: BREAST CANCER FEMALE
     Dosage: 10.0MG UNKNOWN
     Route: 048
  3. TOREMIFENE [Concomitant]
     Active Substance: TOREMIFENE
     Indication: BREAST CANCER FEMALE
     Dosage: DOSE UNKNOWN
     Route: 065
  4. LH-RH [Concomitant]
     Indication: BREAST CANCER FEMALE
     Dosage: DOSE UNKNOWN
     Route: 065
  5. LH-RH [Concomitant]
     Indication: BREAST CANCER FEMALE
     Dosage: DOSE UNKNOWN
     Route: 065
  6. CYCLOPHOSPHAMIDE HYDRATE [Concomitant]
     Active Substance: CYCLOPHOSPHAMIDE
     Indication: BREAST CANCER FEMALE
     Dosage: DOSE UNKNOWN
     Route: 065
  7. LYNPARZA [Suspect]
     Active Substance: OLAPARIB
     Indication: BREAST CANCER FEMALE
     Dosage: 150.0MG UNKNOWN
     Route: 048
  8. NOLVADEX [Suspect]
     Active Substance: TAMOXIFEN CITRATE
     Indication: BREAST CANCER FEMALE
     Dosage: 10.0MG UNKNOWN
     Route: 048
  9. FLUOROURACIL. [Concomitant]
     Active Substance: FLUOROURACIL
     Indication: BREAST CANCER FEMALE
     Dosage: DOSE UNKNOWN
     Route: 065
  10. PALBOCICLIB [Suspect]
     Active Substance: PALBOCICLIB
     Indication: BREAST CANCER FEMALE
     Dosage: DOSE UNKNOWN
     Route: 048
  11. METHOTREXATE. [Concomitant]
     Active Substance: METHOTREXATE
     Indication: BREAST CANCER FEMALE
     Dosage: DOSE UNKNOWN
     Route: 065

REACTIONS (9)
  - Malignant neoplasm progression [Unknown]
  - Death [Fatal]
  - Metastases to retroperitoneum [Unknown]
  - Metastases to bladder [Unknown]
  - Metastases to peritoneum [Unknown]
  - Metastases to central nervous system [Unknown]
  - Breast cancer recurrent [Unknown]
  - Metastases to muscle [Unknown]
  - Metastases to lymph nodes [Unknown]
